FAERS Safety Report 11984962 (Version 6)
Quarter: 2016Q2

REPORT INFORMATION
  Report Type: Spontaneous
  Country: US (occurrence: US)
  Receive Date: 20160201
  Receipt Date: 20160628
  Transmission Date: 20160815
  Serious: Yes (Death, Hospitalization, Other)
  Sender: FDA-Public Use
  Company Number: US-BRISTOL-MYERS SQUIBB COMPANY-BMS-2016-005230

PATIENT
  Age: 82 Year
  Sex: Male
  Weight: 58.96 kg

DRUGS (3)
  1. FLOMAX [Concomitant]
     Active Substance: TAMSULOSIN HYDROCHLORIDE
     Indication: PRODUCT USED FOR UNKNOWN INDICATION
     Route: 065
  2. OPDIVO [Suspect]
     Active Substance: NIVOLUMAB
     Indication: METASTATIC MALIGNANT MELANOMA
     Dosage: 3 MG/KG, Q2WK
     Route: 042
     Dates: start: 20151005, end: 20151019
  3. OPDIVO [Suspect]
     Active Substance: NIVOLUMAB
     Dosage: 3 MG/KG, Q2WK
     Route: 042
     Dates: start: 20151019, end: 20151019

REACTIONS (8)
  - Autoimmune hepatitis [Unknown]
  - Product quality issue [Unknown]
  - Pneumonia aspiration [Fatal]
  - Rhabdomyolysis [Fatal]
  - Myalgia [Unknown]
  - Liver function test increased [Unknown]
  - Atrial fibrillation [Unknown]
  - Acute respiratory failure [Unknown]

NARRATIVE: CASE EVENT DATE: 20151023
